FAERS Safety Report 4533822-7 (Version None)
Quarter: 2004Q4

REPORT INFORMATION
  Report Type: 
  Country: None (occurrence: None)
  Receive Date: 20041221
  Receipt Date: 20041213
  Transmission Date: 20050328
  Serious: Yes (Life-Threatening, Hospitalization, Disabling)
  Sender: FDA-Public Use
  Company Number: US-MERCK-0412USA01601

PATIENT
  Age: 61 Year
  Sex: Male

DRUGS (8)
  1. VIOXX [Suspect]
     Indication: ARTHRITIS
     Route: 048
     Dates: end: 20040601
  2. VIOXX [Suspect]
     Route: 048
  3. SINGULAIR [Concomitant]
     Route: 048
  4. DOXEPIN HYDROCHLORIDE [Concomitant]
     Route: 065
  5. ALLEGRA [Concomitant]
     Route: 065
  6. ZYRTEC [Concomitant]
     Route: 065
  7. ACCOLATE [Concomitant]
     Route: 065
  8. HYDROXYZINE HYDROCHLORIDE [Concomitant]
     Route: 065

REACTIONS (2)
  - OVERDOSE [None]
  - URTICARIA [None]
